FAERS Safety Report 16025053 (Version 7)
Quarter: 2022Q4

REPORT INFORMATION
  Report Type: Report from Study
  Country: US (occurrence: US)
  Receive Date: 20190301
  Receipt Date: 20221122
  Transmission Date: 20230113
  Serious: Yes (Death, Life-Threatening, Hospitalization, Other)
  Sender: FDA-Public Use
  Company Number: US-BRISTOL-MYERS SQUIBB COMPANY-BMS-2019-020938

PATIENT
  Age: 84 Year
  Sex: Male
  Weight: 48 kg

DRUGS (9)
  1. TRAMETINIB [Suspect]
     Active Substance: TRAMETINIB
     Indication: Colorectal cancer metastatic
     Dosage: PRIOR TO THE EVENT ONSET, THE PATIENT RECEIVED HIS MOST RECENT DOSE OF TRAMETINIB THERAPY ON 23-FEB-
     Route: 048
     Dates: start: 20190130, end: 20190223
  2. ACYCLOVIR [Concomitant]
     Active Substance: ACYCLOVIR
     Indication: Herpes simplex
     Dosage: UNK
     Route: 065
  3. ROSUVASTATIN [Concomitant]
     Active Substance: ROSUVASTATIN
     Indication: Product used for unknown indication
     Route: 048
     Dates: start: 20170202, end: 20190225
  4. VITAMINS [Concomitant]
     Active Substance: VITAMINS
     Indication: Product used for unknown indication
     Dosage: UNK
     Route: 048
     Dates: start: 20171228, end: 20190225
  5. MEGESTROL [Concomitant]
     Active Substance: MEGESTROL
     Indication: Product used for unknown indication
     Route: 048
     Dates: start: 20180222, end: 20190225
  6. CLOPIDOGREL [Concomitant]
     Active Substance: CLOPIDOGREL BISULFATE
     Indication: Product used for unknown indication
     Route: 048
     Dates: start: 20180812, end: 20190225
  7. K C L [Concomitant]
     Indication: Product used for unknown indication
     Dosage: 1 DF- 20 UNITS NOS
     Route: 048
     Dates: start: 20180524, end: 20190225
  8. HYDROCORTISONE [Concomitant]
     Active Substance: HYDROCORTISONE
     Indication: Dermatitis acneiform
     Dosage: 1 DF- 1 UNIT NOS?ONGOING
     Route: 061
     Dates: start: 201811
  9. CLINDAMYCIN [Concomitant]
     Active Substance: CLINDAMYCIN
     Indication: Dermatitis acneiform
     Dosage: 1 DF- 1 UNIT NOS?ONGOING
     Route: 061
     Dates: start: 20190213

REACTIONS (3)
  - Hepatic failure [Fatal]
  - Colitis [Not Recovered/Not Resolved]
  - Sepsis [Not Recovered/Not Resolved]

NARRATIVE: CASE EVENT DATE: 20190222
